FAERS Safety Report 23127271 (Version 2)
Quarter: 2023Q4

REPORT INFORMATION
  Report Type: Report from Study
  Country: US (occurrence: US)
  Receive Date: 20231031
  Receipt Date: 20231206
  Transmission Date: 20240109
  Serious: No
  Sender: FDA-Public Use
  Company Number: US-ACADIA PHARMACEUTICALS INC.-ACA-2023-TRF-004534

PATIENT
  Age: 26 Year
  Sex: Female
  Weight: 56 kg

DRUGS (7)
  1. DAYBUE [Suspect]
     Active Substance: TROFINETIDE
     Indication: Rett syndrome
     Dosage: 35 MILLILITER, BID VIA G-TUBE
     Dates: start: 20230923, end: 20230928
  2. DAYBUE [Suspect]
     Active Substance: TROFINETIDE
     Dosage: DOWN TO 10 ML BID
     Dates: end: 20231023
  3. ESCITALOPRAM [Concomitant]
     Active Substance: ESCITALOPRAM OXALATE
  4. CARBIDOPA\LEVODOPA [Concomitant]
     Active Substance: CARBIDOPA\LEVODOPA
  5. MIRTAZAPINE [Concomitant]
     Active Substance: MIRTAZAPINE
  6. VALPROIC ACID [Concomitant]
     Active Substance: VALPROIC ACID
  7. FAMOTIDINE [Concomitant]
     Active Substance: FAMOTIDINE

REACTIONS (8)
  - Behaviour disorder [Recovered/Resolved]
  - Prescribed underdose [Not Recovered/Not Resolved]
  - Mood altered [Recovered/Resolved]
  - Crying [Recovered/Resolved]
  - Depression [Recovered/Resolved]
  - Screaming [Recovered/Resolved]
  - Drug ineffective [Unknown]
  - Anxiety [Recovered/Resolved]

NARRATIVE: CASE EVENT DATE: 20230923
